FAERS Safety Report 15298217 (Version 1)
Quarter: 2018Q3

REPORT INFORMATION
  Report Type: Spontaneous
  Country: US (occurrence: US)
  Receive Date: 20180820
  Receipt Date: 20180820
  Transmission Date: 20181010
  Serious: No
  Sender: FDA-Public Use
  Company Number: US-ALLERGAN-1763772US

PATIENT
  Sex: Male

DRUGS (1)
  1. SAPHRIS [Suspect]
     Active Substance: ASENAPINE MALEATE
     Indication: PSYCHIATRIC SYMPTOM
     Dosage: 12.5 MG, Q12H
     Route: 048
     Dates: start: 201710, end: 201711

REACTIONS (2)
  - Adverse reaction [Recovered/Resolved]
  - Off label use [Unknown]
